FAERS Safety Report 4541610-0 (Version None)
Quarter: 2004Q4

REPORT INFORMATION
  Report Type: 
  Country: None (occurrence: None)
  Receive Date: 20041230
  Receipt Date: 20041223
  Transmission Date: 20050328
  Serious: Yes (Hospitalization)
  Sender: FDA-Public Use
  Company Number: PHRM2004FR03752

PATIENT
  Age: 95 Year
  Sex: Female

DRUGS (13)
  1. ESIDRIX [Suspect]
     Dosage: 12.5 MG/DAY
     Route: 048
     Dates: start: 20041102, end: 20041119
  2. ESIDRIX [Suspect]
     Dosage: 12.5 MG/DAY
     Route: 048
     Dates: start: 20041124, end: 20041127
  3. FURADANTIN [Suspect]
     Dosage: UNK, UNK
     Route: 048
     Dates: start: 20041020, end: 20041127
  4. KARDEGIC [Suspect]
     Dosage: UNK, UNK
     Route: 048
  5. EQUANIL [Suspect]
     Dosage: 200 MG/DAY
     Route: 048
     Dates: start: 20040816, end: 20041127
  6. MOPRAL [Suspect]
     Dosage: 20 MG/DAY
     Route: 048
     Dates: start: 20041020, end: 20041201
  7. BISOPROLOL FUMARATE [Concomitant]
     Route: 048
  8. ACUITEL [Concomitant]
     Route: 048
  9. ARICEPT [Concomitant]
     Route: 048
  10. IMOVANE [Concomitant]
     Route: 048
  11. NITROGLYCERIN [Concomitant]
     Route: 062
  12. DUPHALAC [Concomitant]
     Route: 048
  13. LASILIX [Concomitant]
     Route: 048

REACTIONS (7)
  - HENOCH-SCHONLEIN PURPURA [None]
  - HYPONATRAEMIA [None]
  - INFLAMMATION [None]
  - LEUKOPENIA [None]
  - LYMPHOPENIA [None]
  - NEUTROPENIA [None]
  - PYREXIA [None]
